FAERS Safety Report 8837857 (Version 2)
Quarter: 2013Q1

REPORT INFORMATION
  Report Type: Spontaneous
  Country: JP (occurrence: JP)
  Receive Date: 20121012
  Receipt Date: 20130313
  Transmission Date: 20140127
  Serious: Yes (Other)
  Sender: FDA-Public Use
  Company Number: JP-UCBSA-066631

PATIENT
  Age: 36 Year
  Sex: Female

DRUGS (2)
  1. E KEPPRA [Suspect]
     Indication: EPILEPSY
     Route: 048
  2. TEGRETOL [Suspect]
     Route: 048

REACTIONS (3)
  - Selective abortion [Recovered/Resolved]
  - Somnolence [Recovering/Resolving]
  - Exposure during pregnancy [Recovered/Resolved]
